FAERS Safety Report 6207321-0 (Version None)
Quarter: 2009Q2

REPORT INFORMATION
  Report Type: 
  Country: None (occurrence: None)
  Receive Date: 20090527
  Receipt Date: 20090527
  Transmission Date: 20091009
  Serious: Yes (Hospitalization)
  Sender: FDA-Public Use
  Company Number: None

PATIENT
  Age: 86 Year
  Sex: Male
  Weight: 75.3 kg

DRUGS (1)
  1. TERAZOSIN HCL [Suspect]
     Indication: PROSTATIC SPECIFIC ANTIGEN INCREASED
     Dosage: 1 MG PER HOUR PO
     Route: 048
     Dates: start: 20031209, end: 20090226

REACTIONS (3)
  - DIZZINESS POSTURAL [None]
  - HYPOTENSION [None]
  - PULSE ABSENT [None]
